FAERS Safety Report 7920673-6 (Version None)
Quarter: 2011Q4

REPORT INFORMATION
  Report Type: 
  Country: None (occurrence: None)
  Receive Date: 20111117
  Receipt Date: 20111106
  Transmission Date: 20120403
  Serious: No
  Sender: FDA-Public Use
  Company Number: US-B.I. PHARMACEUTICALS,INC./RIDGEFIELD-2011-BP-25688BP

PATIENT
  Age: 84 Year
  Sex: Male

DRUGS (16)
  1. RANITIDINE [Concomitant]
     Indication: GASTROOESOPHAGEAL REFLUX DISEASE
     Dosage: 300 MG
  2. BENEFIBER [Concomitant]
     Indication: FUNCTIONAL GASTROINTESTINAL DISORDER
  3. COLACE [Concomitant]
     Indication: FUNCTIONAL GASTROINTESTINAL DISORDER
  4. CARVEDILOL [Concomitant]
     Dosage: 6.25 MG
  5. PRADAXA [Suspect]
     Indication: ATRIAL FIBRILLATION
     Dosage: 300 MG
     Route: 048
     Dates: start: 20111028
  6. ASPIRIN [Concomitant]
     Dosage: 81 MG
  7. COQ10 [Concomitant]
     Indication: MUSCLE DISORDER
  8. PROSCAR [Concomitant]
     Indication: PROSTATIC DISORDER
     Dosage: 5 MG
  9. LIPITOR [Concomitant]
     Indication: BLOOD CHOLESTEROL ABNORMAL
     Dosage: 10 MG
  10. VITAMIN D [Concomitant]
     Dosage: 1000 U
  11. MEN'S VITAMIN [Concomitant]
  12. ISOSORBIDE MONONITRATE [Concomitant]
     Dosage: 60 MG
  13. NATURAL TEARS [Concomitant]
  14. LEVOTHRYROXINE [Concomitant]
     Indication: THYROID DISORDER
     Dosage: 0.75 MG
  15. FISH OIL [Concomitant]
     Dosage: 1000 MG
  16. CALCIUM CITRATE [Concomitant]
     Dosage: 250 MG

REACTIONS (3)
  - CHEST DISCOMFORT [None]
  - CONTUSION [None]
  - EPISTAXIS [None]
